FAERS Safety Report 18791136 (Version 1)
Quarter: 2021Q1

REPORT INFORMATION
  Report Type: Spontaneous
  Country: US (occurrence: US)
  Receive Date: 20210126
  Receipt Date: 20210126
  Transmission Date: 20210419
  Serious: No
  Sender: FDA-Public Use
  Company Number: US-FRESENIUS KABI-FK202100891

PATIENT

DRUGS (2)
  1. LIDOCAINE HYDROCHLORIDE INJECTION, USP [Suspect]
     Active Substance: LIDOCAINE HYDROCHLORIDE
     Indication: NEUROMUSCULAR BLOCKADE
     Route: 065
  2. XYLOCAINE?MPF [Suspect]
     Active Substance: LIDOCAINE HYDROCHLORIDE
     Indication: NEUROMUSCULAR BLOCKADE
     Route: 065

REACTIONS (1)
  - Drug ineffective [Unknown]
